FAERS Safety Report 9345337 (Version 2)
Quarter: 2013Q2

REPORT INFORMATION
  Report Type: Spontaneous
  Country: BE (occurrence: BE)
  Receive Date: 20130613
  Receipt Date: 20130620
  Transmission Date: 20140414
  Serious: Yes (Hospitalization)
  Sender: FDA-Public Use
  Company Number: BE-B.I. PHARMACEUTICALS,INC./RIDGEFIELD-2013-BL-00294BL

PATIENT
  Age: 69 Year
  Sex: Male

DRUGS (5)
  1. PRADAXA [Suspect]
     Indication: ATRIAL FIBRILLATION
     Dosage: 110 MG
     Dates: start: 201302
  2. BISOPROLOL [Concomitant]
     Indication: HYPERTENSION
  3. LISINOPRIL [Concomitant]
     Indication: HYPERTENSION
  4. GLUCOPHAGE [Concomitant]
     Indication: DIABETES MELLITUS
  5. STATINES [Concomitant]
     Indication: BLOOD CHOLESTEROL

REACTIONS (3)
  - Hidradenitis [Not Recovered/Not Resolved]
  - Pancytopenia [Not Recovered/Not Resolved]
  - Off label use [Not Recovered/Not Resolved]
